FAERS Safety Report 24414789 (Version 1)
Quarter: 2024Q4

REPORT INFORMATION
  Report Type: Spontaneous
  Country: US (occurrence: US)
  Receive Date: 20241009
  Receipt Date: 20241009
  Transmission Date: 20250115
  Serious: No
  Sender: GE HEALTHCARE
  Company Number: US-GE HEALTHCARE-2024CSU008209

PATIENT
  Sex: Female

DRUGS (2)
  1. VIZAMYL [Suspect]
     Active Substance: FLUTEMETAMOL F-18
     Indication: Positron emission tomogram
     Dosage: 185 MBQ, TOTAL
     Route: 042
     Dates: start: 20240718, end: 20240718
  2. SALINE [Concomitant]
     Active Substance: SODIUM CHLORIDE
     Dosage: 10 ML, TOTAL
     Route: 065
     Dates: start: 20240718, end: 20240718

REACTIONS (1)
  - Back pain [Recovered/Resolved]

NARRATIVE: CASE EVENT DATE: 20240718
